FAERS Safety Report 12231091 (Version 2)
Quarter: 2016Q2

REPORT INFORMATION
  Report Type: Report from Study
  Country: BR (occurrence: BR)
  Receive Date: 20160401
  Receipt Date: 20160418
  Transmission Date: 20160815
  Serious: Yes (Other)
  Sender: FDA-Public Use
  Company Number: PHHY2016BR042839

PATIENT
  Sex: Female
  Weight: 75 kg

DRUGS (4)
  1. JANUVIA [Concomitant]
     Active Substance: SITAGLIPTIN PHOSPHATE
     Indication: DIABETES MELLITUS
     Dosage: 1 DF OF 100 MG, QD
     Route: 048
  2. AFINITOR [Suspect]
     Active Substance: EVEROLIMUS
     Indication: BREAST CANCER METASTATIC
     Dosage: 1 DF OF 10 MG, QD
     Route: 048
     Dates: start: 20160202
  3. GLIMEPIRIDE. [Concomitant]
     Active Substance: GLIMEPIRIDE
     Indication: DIABETES MELLITUS
     Dosage: 1 DF OF 4 MG, QD
     Route: 048
  4. AROMASIN [Concomitant]
     Active Substance: EXEMESTANE
     Indication: METASTASES TO BONE
     Dosage: 1 DF OF 25 MG, QD
     Route: 048
     Dates: start: 20160202

REACTIONS (9)
  - Blood glucose increased [Recovered/Resolved]
  - Parosmia [Recovering/Resolving]
  - Diet refusal [Recovering/Resolving]
  - Ageusia [Recovering/Resolving]
  - Malaise [Recovering/Resolving]
  - Arthralgia [Recovering/Resolving]
  - Nausea [Unknown]
  - Hypoaesthesia oral [Recovering/Resolving]
  - Dry mouth [Recovering/Resolving]
